FAERS Safety Report 7637898-X (Version None)
Quarter: 2011Q3

REPORT INFORMATION
  Report Type: 
  Country: None (occurrence: None)
  Receive Date: 20110720
  Receipt Date: 20110705
  Transmission Date: 20111222
  Serious: Yes (Death, Hospitalization)
  Sender: FDA-Public Use
  Company Number: AUR-APL-2010-02961

PATIENT
  Age: 19 Year
  Sex: Male

DRUGS (1)
  1. LAMOTRIGINE [Suspect]
     Indication: PRODUCT USED FOR UNKNOWN INDICATION
     Dosage: (4 GM,TOTAL),ORAL
     Route: 048

REACTIONS (29)
  - MULTI-ORGAN FAILURE [None]
  - PROTEIN TOTAL INCREASED [None]
  - RESPIRATORY ACIDOSIS [None]
  - PNEUMONIA KLEBSIELLA [None]
  - BLOOD GLUCOSE DECREASED [None]
  - BLOOD SODIUM INCREASED [None]
  - TREMOR [None]
  - ASPIRATION [None]
  - CARDIAC ARREST [None]
  - HYPOTENSION [None]
  - LUNG INFILTRATION [None]
  - PNEUMONIA STAPHYLOCOCCAL [None]
  - SINUS TACHYCARDIA [None]
  - BUNDLE BRANCH BLOCK LEFT [None]
  - GRAND MAL CONVULSION [None]
  - INTENTIONAL OVERDOSE [None]
  - BLOOD GLUCOSE INCREASED [None]
  - ATRIOVENTRICULAR BLOCK COMPLETE [None]
  - HAEMODIALYSIS [None]
  - METABOLIC ACIDOSIS [None]
  - RHABDOMYOLYSIS [None]
  - BLOOD POTASSIUM DECREASED [None]
  - DISSEMINATED INTRAVASCULAR COAGULATION [None]
  - PALLOR [None]
  - WHITE BLOOD CELL COUNT INCREASED [None]
  - MENTAL STATUS CHANGES [None]
  - RENAL FAILURE ACUTE [None]
  - ENCEPHALOPATHY [None]
  - BLOOD CHLORIDE INCREASED [None]
